FAERS Safety Report 4388284-X (Version None)
Quarter: 2004Q2

REPORT INFORMATION
  Report Type: 
  Country: None (occurrence: None)
  Receive Date: 20040625
  Receipt Date: 20040603
  Transmission Date: 20050107
  Serious: Yes (Hospitalization)
  Sender: FDA-Public Use
  Company Number: 6009169

PATIENT
  Age: 89 Year
  Sex: Female

DRUGS (9)
  1. DIKLOFENAC NM PHARMA (50 MG, TABLETS)(DICLOFENAC) [Suspect]
     Indication: DRUG USE FOR UNKNOWN INDICATION
     Dosage: 100 MG
     Route: 048
     Dates: start: 20030606, end: 20040227
  2. TROMBYL (75 MG, TABLETS) (ACETYLSALICYLIC ACID) [Suspect]
     Indication: DRUG USE FOR UNKNOWN INDICATION
     Dosage: 75 MG
     Route: 048
     Dates: start: 20031208
  3. PAROXETINE HCL [Suspect]
     Indication: DRUG USE FOR UNKNOWN INDICATION
     Dosage: 20 MG
     Route: 048
     Dates: start: 19990927, end: 20040302
  4. FUROSEMIDE [Suspect]
     Indication: DRUG USE FOR UNKNOWN INDICATION
     Dosage: 160 MG
     Route: 048
     Dates: start: 20010718, end: 20040224
  5. SPIRONOLAKTON NORDIC (50 MG, TABLETS) (SPIRONOLACTONE) [Suspect]
     Indication: DRUG USE FOR UNKNOWN INDICATION
     Dosage: 50 MG
     Route: 048
     Dates: start: 19970408, end: 20040224
  6. DUROFERON (FERROUS SULFATE) [Concomitant]
  7. LEVAXIN (LEVOTHYROXINE SODIUM) [Concomitant]
  8. CORDARONE [Concomitant]
  9. ALLOPURINOL NORDIC (ALLOPURINOL) [Concomitant]

REACTIONS (10)
  - ANAEMIA [None]
  - BLOOD GLUCOSE INCREASED [None]
  - DECREASED APPETITE [None]
  - DEHYDRATION [None]
  - HYPONATRAEMIA [None]
  - MUCOUS MEMBRANE DISORDER [None]
  - RENAL FAILURE [None]
  - SKIN TURGOR DECREASED [None]
  - URINE OUTPUT INCREASED [None]
  - WEIGHT DECREASED [None]
